FAERS Safety Report 4422072-0 (Version None)
Quarter: 2004Q3

REPORT INFORMATION
  Report Type: 
  Country: None (occurrence: None)
  Receive Date: 20040712
  Receipt Date: 20030620
  Transmission Date: 20050211
  Serious: Yes (Hospitalization)
  Sender: FDA-Public Use
  Company Number: TAP2003Q01527

PATIENT
  Age: 73 Year
  Sex: Female
  Weight: 77.1115 kg

DRUGS (3)
  1. PREVACID [Suspect]
     Indication: PEPTIC ULCER
     Dosage: 30 MG, 1 IN 1 D, PER ORAL
     Route: 048
     Dates: start: 20030201
  2. MULTIVITAMIN WITH IRON (MULTIVITAMINS AND IRON) [Concomitant]
  3. CALTRATE (CALCIUM CARBONATE) [Concomitant]

REACTIONS (3)
  - DYSPHAGIA [None]
  - OEDEMA PERIPHERAL [None]
  - PALPITATIONS [None]
